FAERS Safety Report 18701436 (Version 8)
Quarter: 2025Q4

REPORT INFORMATION
  Report Type: Spontaneous
  Country: CA (occurrence: CA)
  Receive Date: 20210105
  Receipt Date: 20251119
  Transmission Date: 20260118
  Serious: Yes (Hospitalization, Other)
  Sender: PFIZER
  Company Number: CA-PFIZER INC-2020518166

PATIENT
  Age: 78 Year
  Sex: Female

DRUGS (137)
  1. APIXABAN [Suspect]
     Active Substance: APIXABAN
     Indication: Anticoagulant therapy
     Dosage: 2 DF, 1X/DAY
     Route: 048
  2. AMLODIPINE BESYLATE [Suspect]
     Active Substance: AMLODIPINE BESYLATE
     Indication: Hypertension
     Dosage: 10 MG, 1X/DAY
     Route: 065
  3. CALCIUM CARBONATE [Suspect]
     Active Substance: CALCIUM CARBONATE
     Indication: Osteoporosis
     Dosage: UNK
     Route: 065
  4. CALCIUM GLUCONATE [Suspect]
     Active Substance: CALCIUM GLUCONATE
     Indication: Osteoporosis
     Dosage: UNK
     Route: 065
  5. CYANOCOBALAMIN [Suspect]
     Active Substance: CYANOCOBALAMIN
     Dosage: UNK
     Route: 065
  6. FUROSEMIDE [Suspect]
     Active Substance: FUROSEMIDE
     Indication: Oedema peripheral
     Dosage: 40 MG, 1X/DAY
     Route: 065
  7. LABETALOL HYDROCHLORIDE [Suspect]
     Active Substance: LABETALOL HYDROCHLORIDE
     Indication: Hypertension
     Dosage: 500 MG, 2X/DAY
     Route: 065
  8. LABETALOL HYDROCHLORIDE [Suspect]
     Active Substance: LABETALOL HYDROCHLORIDE
     Dosage: 200 MG, 2X/DAY
     Route: 065
  9. PANTOPRAZOLE [Suspect]
     Active Substance: PANTOPRAZOLE
     Dosage: 40 MG, 1X/DAY
     Route: 065
  10. ACEBUTOLOL [Suspect]
     Active Substance: ACEBUTOLOL
     Indication: Hypertension
     Dosage: UNK
     Route: 065
  11. ASPIRIN [Suspect]
     Active Substance: ASPIRIN
     Indication: Cerebrovascular accident
     Dosage: 81 MG, 1X/DAY, FORMULATION: ENTERIC-COATED TABLET
     Route: 065
  12. ASPIRIN [Suspect]
     Active Substance: ASPIRIN
     Indication: Anticoagulant therapy
     Dosage: FORMULATION: MODIFIED-RELEASE TABLET
  13. ALISKIREN [Suspect]
     Active Substance: ALISKIREN
     Indication: Hypertension
     Dosage: 300 MG, 1X/DAY
     Route: 065
  14. ALLOPURINOL [Suspect]
     Active Substance: ALLOPURINOL
     Indication: Prophylaxis
     Dosage: 100 MG
     Route: 065
  15. ALLOPURINOL [Suspect]
     Active Substance: ALLOPURINOL
     Indication: Gout
     Dosage: 200 MG
     Route: 065
  16. ALLOPURINOL [Suspect]
     Active Substance: ALLOPURINOL
     Indication: Prophylaxis
     Dosage: 250 MG, 1X/DAY
     Route: 065
  17. ALLOPURINOL [Suspect]
     Active Substance: ALLOPURINOL
     Indication: Gout
  18. BETAMETHASONE [Suspect]
     Active Substance: BETAMETHASONE
     Indication: Psoriasis
     Dosage: UNK
     Route: 065
  19. BETAMETHASONE VALERATE [Suspect]
     Active Substance: BETAMETHASONE VALERATE
     Indication: Psoriasis
     Dosage: UNK
  20. CALCIPOTRIENE [Suspect]
     Active Substance: CALCIPOTRIENE
     Indication: Psoriasis
     Dosage: UNK
     Route: 065
  21. FLUTICASONE PROPIONATE [Suspect]
     Active Substance: FLUTICASONE PROPIONATE
     Indication: Wheezing
     Dosage: 2 DF, 2X/DAY
  22. FLUTICASONE PROPIONATE [Suspect]
     Active Substance: FLUTICASONE PROPIONATE
     Indication: Cough
  23. GLICLAZIDE [Suspect]
     Active Substance: GLICLAZIDE
     Indication: Diabetes mellitus
     Dosage: 30 MG, 2X/DAY
     Route: 065
  24. GLICLAZIDE [Suspect]
     Active Substance: GLICLAZIDE
     Indication: Diabetes mellitus
     Dosage: 60 MG, 1X/DAY
     Route: 065
  25. HYDRALAZINE [Suspect]
     Active Substance: HYDRALAZINE HYDROCHLORIDE
     Indication: Hypertension
     Dosage: UNK
     Route: 065
  26. JANUVIA [Suspect]
     Active Substance: SITAGLIPTIN PHOSPHATE
     Indication: Diabetes mellitus
     Dosage: 100 MG, 1X/DAY
     Route: 048
  27. LEVOTHYROXINE SODIUM [Suspect]
     Active Substance: LEVOTHYROXINE SODIUM
     Indication: Hypothyroidism
     Dosage: UNK
     Route: 065
  28. PRAMIPEXOLE DIHYDROCHLORIDE [Suspect]
     Active Substance: PRAMIPEXOLE DIHYDROCHLORIDE
     Indication: Restless legs syndrome
     Dosage: UNK
     Route: 065
  29. RANITIDINE [Suspect]
     Active Substance: RANITIDINE
     Indication: Dyspepsia
     Dosage: 150 MG
     Route: 065
  30. RISEDRONATE SODIUM [Suspect]
     Active Substance: RISEDRONATE SODIUM
     Indication: Osteoporosis
     Dosage: 35 MG, WEEKLY
     Route: 065
  31. ALBUTEROL [Suspect]
     Active Substance: ALBUTEROL
     Dosage: UNK
     Route: 065
  32. THEO-DUR [Suspect]
     Active Substance: THEOPHYLLINE ANHYDROUS
     Indication: Hypertension
     Dosage: TABLET (EXTENDED- RELEASE)
     Route: 065
  33. TRAMADOL HYDROCHLORIDE [Suspect]
     Active Substance: TRAMADOL HYDROCHLORIDE
     Indication: Pain
     Dosage: UNK
     Route: 065
  34. VALSARTAN [Suspect]
     Active Substance: VALSARTAN
     Indication: Hypertension
     Dosage: 320 MG, 1X/DAY
     Route: 065
  35. ZOCOR [Suspect]
     Active Substance: SIMVASTATIN
     Indication: Cerebrovascular accident
     Dosage: 10 MG, 1X/DAY
     Route: 065
  36. ACETAMINOPHEN [Concomitant]
     Active Substance: ACETAMINOPHEN
     Indication: Pain
     Dosage: 325 MG, 2X/DAY
     Route: 065
  37. ACETAMINOPHEN [Concomitant]
     Active Substance: ACETAMINOPHEN
     Dosage: 325 MG, 2X/DAY
  38. ACETAMINOPHEN [Concomitant]
     Active Substance: ACETAMINOPHEN
     Dosage: 325 MG, 2X/DAY
  39. ERGOCALCIFEROL [Concomitant]
     Active Substance: ERGOCALCIFEROL
     Indication: Osteoporosis
     Dosage: 1 DF, 1X/DAY
     Route: 065
  40. ERGOCALCIFEROL [Concomitant]
     Active Substance: ERGOCALCIFEROL
     Dosage: 1.0 DF, 1X/DAY
  41. ERGOCALCIFEROL [Concomitant]
     Active Substance: ERGOCALCIFEROL
     Dosage: 1.0 DF, 1X/DAY
  42. ACETAMINOPHEN\METHOCARBAMOL [Concomitant]
     Active Substance: ACETAMINOPHEN\METHOCARBAMOL
     Indication: Back pain
     Dosage: UNK
     Route: 065
  43. HERBALS\PLANTAGO OVATA LEAF [Concomitant]
     Active Substance: HERBALS\PLANTAGO OVATA LEAF
     Indication: Constipation
     Dosage: UNK
     Route: 065
  44. CLOPIDOGREL BISULFATE [Concomitant]
     Active Substance: CLOPIDOGREL BISULFATE
     Indication: Anticoagulant therapy
     Dosage: UNK
  45. ASPIRIN [Concomitant]
     Active Substance: ASPIRIN
     Indication: Cerebrovascular accident
     Dosage: 81 MG (ENTERIC-COATED TABLET)
     Route: 048
  46. ASPIRIN [Concomitant]
     Active Substance: ASPIRIN
     Indication: Anticoagulant therapy
  47. ASPIRIN [Concomitant]
     Active Substance: ASPIRIN
     Indication: Cerebrovascular accident
     Dosage: UNK
  48. ASPIRIN [Concomitant]
     Active Substance: ASPIRIN
     Indication: Anticoagulant therapy
  49. BETAMETHASONE DIPROPIONATE [Concomitant]
     Active Substance: BETAMETHASONE DIPROPIONATE
     Indication: Psoriasis
     Dosage: UNK
  50. ACEBUTOLOL [Concomitant]
     Active Substance: ACEBUTOLOL
     Indication: Hypertension
     Dosage: UNK
  51. ALISKIREN [Concomitant]
     Active Substance: ALISKIREN
     Indication: Hypertension
     Dosage: 300.0 MG, 1X/DAY
  52. ALISKIREN [Concomitant]
     Active Substance: ALISKIREN
     Dosage: 300.0 MG, 1X/DAY
  53. ALISKIREN [Concomitant]
     Active Substance: ALISKIREN
     Dosage: 300.0 MG, 1X/DAY
  54. ALLOPURINOL [Concomitant]
     Active Substance: ALLOPURINOL
     Indication: Prophylaxis
     Dosage: 200.0 MG
  55. ALLOPURINOL [Concomitant]
     Active Substance: ALLOPURINOL
     Indication: Gout
     Dosage: 250.0 MG, 1X/DAY
  56. ALLOPURINOL [Concomitant]
     Active Substance: ALLOPURINOL
     Indication: Metabolic disorder
     Dosage: 100.0 MG
  57. ALLOPURINOL [Concomitant]
     Active Substance: ALLOPURINOL
     Dosage: 10.0 MG, 1X/DAY
  58. ALLOPURINOL [Concomitant]
     Active Substance: ALLOPURINOL
     Dosage: 200.0 MG
  59. ALLOPURINOL [Concomitant]
     Active Substance: ALLOPURINOL
     Dosage: 250.0 MG, 1X/DAY
  60. AMLODIPINE [Concomitant]
     Active Substance: AMLODIPINE BESYLATE
     Indication: Hypertension
     Dosage: 10.0 MG, 1X/DAY
  61. AMLODIPINE [Concomitant]
     Active Substance: AMLODIPINE BESYLATE
     Dosage: 10.0 MG, 1X/DAY
  62. ASPIRIN [Concomitant]
     Active Substance: ASPIRIN
     Indication: Cerebrovascular accident
     Dosage: 81.0 MG
     Route: 048
  63. ASPIRIN [Concomitant]
     Active Substance: ASPIRIN
     Indication: Anticoagulant therapy
     Dosage: 81.0 MG
     Route: 048
  64. ASPIRIN [Concomitant]
     Active Substance: ASPIRIN
     Dosage: 81.0 MG
     Route: 048
  65. ASPIRIN [Concomitant]
     Active Substance: ASPIRIN
     Dosage: 81.0 MG
     Route: 048
  66. BETAMETHASONE [Concomitant]
     Active Substance: BETAMETHASONE
     Indication: Psoriasis
     Dosage: UNK
  67. BETAMETHASONE VALERATE [Concomitant]
     Active Substance: BETAMETHASONE VALERATE
     Indication: Psoriasis
     Dosage: UNK
  68. CALCIPOTRIENE [Concomitant]
     Active Substance: CALCIPOTRIENE
     Indication: Psoriasis
     Dosage: 1X/DAY
  69. CALCIUM CARBONATE [Concomitant]
     Active Substance: CALCIUM CARBONATE
     Indication: Osteoporosis
     Dosage: 1.0 DF
  70. CALCIUM CARBONATE [Concomitant]
     Active Substance: CALCIUM CARBONATE
     Dosage: 1.0 DF
  71. CALCIUM GLUCONATE [Concomitant]
     Active Substance: CALCIUM GLUCONATE
     Indication: Osteoporosis
     Dosage: 1.0 DF
  72. CALCIUM GLUCONATE [Concomitant]
     Active Substance: CALCIUM GLUCONATE
     Dosage: 1.0 DF
  73. CYANOCOBALAMIN [Concomitant]
     Active Substance: CYANOCOBALAMIN
     Dosage: UNK
  74. FLUTICASONE PROPIONATE [Concomitant]
     Active Substance: FLUTICASONE PROPIONATE
     Indication: Wheezing
     Dosage: 2 DF, 2X/DAY
  75. FLUTICASONE PROPIONATE [Concomitant]
     Active Substance: FLUTICASONE PROPIONATE
     Indication: Cough
     Dosage: 2 DF, 2X/DAY
  76. FUROSEMIDE [Concomitant]
     Active Substance: FUROSEMIDE
     Indication: Oedema peripheral
     Dosage: 40.0 MG, 1X/DAY
  77. FUROSEMIDE [Concomitant]
     Active Substance: FUROSEMIDE
     Dosage: 40.0 MG, 1X/DAY
  78. GLICLAZIDE [Concomitant]
     Active Substance: GLICLAZIDE
     Indication: Diabetes mellitus
     Dosage: 30 MG, 2X/DAY
  79. GLICLAZIDE [Concomitant]
     Active Substance: GLICLAZIDE
     Dosage: 60.0 MG, 1X/DAY
  80. GLICLAZIDE [Concomitant]
     Active Substance: GLICLAZIDE
     Dosage: 60.0 MG, 1X/DAY
  81. HYDRALAZINE [Concomitant]
     Active Substance: HYDRALAZINE HYDROCHLORIDE
     Indication: Hypertension
     Dosage: UNK
  82. JANUVIA [Concomitant]
     Active Substance: SITAGLIPTIN PHOSPHATE
     Indication: Diabetes mellitus
     Dosage: UNK
     Route: 048
  83. JANUVIA [Concomitant]
     Active Substance: SITAGLIPTIN PHOSPHATE
     Dosage: 100.0 MG, 1X/DAY
  84. LABETALOL [Concomitant]
     Active Substance: LABETALOL
     Indication: Hypertension
     Dosage: 200 MG, 2X/DAY
  85. LABETALOL [Concomitant]
     Active Substance: LABETALOL
     Dosage: 500 MG, 2X/DAY
  86. LABETALOL [Concomitant]
     Active Substance: LABETALOL
     Dosage: 400.0 MG, 1X/DAY
  87. LABETALOL [Concomitant]
     Active Substance: LABETALOL
     Dosage: 1000.0 MG, 1X/DAY
  88. LABETALOL [Concomitant]
     Active Substance: LABETALOL
     Dosage: 200.0 MG, 1X/DAY
  89. LABETALOL [Concomitant]
     Active Substance: LABETALOL
     Dosage: 200 MG, 2X/DAY
  90. LEVOTHYROXINE SODIUM [Concomitant]
     Active Substance: LEVOTHYROXINE SODIUM
     Indication: Hypothyroidism
     Dosage: 0.088 MG, 1X/DAY
  91. ACETAMINOPHEN\METHOCARBAMOL [Concomitant]
     Active Substance: ACETAMINOPHEN\METHOCARBAMOL
     Indication: Back pain
     Dosage: UNK
  92. PANTOPRAZOLE [Concomitant]
     Active Substance: PANTOPRAZOLE
     Dosage: 40.0 MG, 1X/DAY
  93. PANTOPRAZOLE [Concomitant]
     Active Substance: PANTOPRAZOLE
     Dosage: 40.0 MG, 1X/DAY
  94. PRAMIPEXOLE DIHYDROCHLORIDE [Concomitant]
     Active Substance: PRAMIPEXOLE DIHYDROCHLORIDE
     Indication: Restless legs syndrome
     Dosage: 0.25 MG, 1X/DAY
  95. RANITIDINE [Concomitant]
     Active Substance: RANITIDINE
     Indication: Dyspepsia
     Dosage: 150.0 MG
  96. RISEDRONATE SODIUM [Concomitant]
     Active Substance: RISEDRONATE SODIUM
     Indication: Osteoporosis
     Dosage: 35.0 MG, WEEKLY
  97. RISEDRONATE SODIUM [Concomitant]
     Active Substance: RISEDRONATE SODIUM
     Dosage: 1.0 DF, 1X/DAY
  98. ALBUTEROL [Concomitant]
     Active Substance: ALBUTEROL
     Dosage: UNK
  99. THEO-DUR [Concomitant]
     Active Substance: THEOPHYLLINE ANHYDROUS
     Indication: Hypertension
     Dosage: TABLET (EXTENDED- RELEASE)
  100. TRAMADOL HYDROCHLORIDE [Concomitant]
     Active Substance: TRAMADOL HYDROCHLORIDE
     Indication: Pain
     Dosage: UNK
  101. VALSARTAN [Concomitant]
     Active Substance: VALSARTAN
     Indication: Hypertension
     Dosage: 320.0 MG, 1X/DAY
  102. VALSARTAN [Concomitant]
     Active Substance: VALSARTAN
     Dosage: 320.0 MG, 1X/DAY
  103. ZOCOR [Concomitant]
     Active Substance: SIMVASTATIN
     Indication: Cerebrovascular accident
     Dosage: 10.0 MG, 1X/DAY
  104. ACEBUTOLOL HYDROCHLORIDE [Concomitant]
     Active Substance: ACEBUTOLOL HYDROCHLORIDE
     Indication: Hypertension
     Dosage: UNK
  105. ASPIRIN [Concomitant]
     Active Substance: ASPIRIN
     Indication: Cerebrovascular accident
     Dosage: 81.0 MG, 1X/DAY
  106. ASPIRIN [Concomitant]
     Active Substance: ASPIRIN
     Indication: Anticoagulant therapy
     Dosage: 81.0 MG, 1X/DAY
  107. ASPIRIN [Concomitant]
     Active Substance: ASPIRIN
     Dosage: 81.0 MG
     Route: 048
  108. ASPIRIN [Concomitant]
     Active Substance: ASPIRIN
     Dosage: UNK
  109. AMLODIPINE BESYLATE [Concomitant]
     Active Substance: AMLODIPINE BESYLATE
     Indication: Hypertension
     Dosage: 10.0 MG, 1X/DAY
  110. TRAMADOL HYDROCHLORIDE [Concomitant]
     Active Substance: TRAMADOL HYDROCHLORIDE
     Indication: Pain
     Dosage: UNK
  111. BETAMETHASONE\SALICYLIC ACID [Concomitant]
     Active Substance: BETAMETHASONE\SALICYLIC ACID
     Indication: Psoriasis
     Dosage: UNK
  112. IBUPROFEN [Concomitant]
     Active Substance: IBUPROFEN
     Dosage: UNK
  113. METFORMIN [Concomitant]
     Active Substance: METFORMIN HYDROCHLORIDE
     Indication: Diabetes mellitus
     Dosage: 1000.0 MG, 1X/DAY
  114. METFORMIN [Concomitant]
     Active Substance: METFORMIN HYDROCHLORIDE
     Dosage: 500 MG, 2X/DAY
  115. METHOCARBAMOL [Concomitant]
     Active Substance: METHOCARBAMOL
     Indication: Back pain
     Dosage: 400 MG, 2X/DAY
  116. METHOCARBAMOL [Concomitant]
     Active Substance: METHOCARBAMOL
     Indication: Pain
     Dosage: 200 MG, 1X/DAY
  117. METHOCARBAMOL [Concomitant]
     Active Substance: METHOCARBAMOL
     Indication: Hypertension
  118. RISEDRONIC ACID [Concomitant]
     Active Substance: RISEDRONIC ACID
     Indication: Osteoporosis
     Dosage: 1.0 DF
  119. RISEDRONIC ACID [Concomitant]
     Active Substance: RISEDRONIC ACID
     Dosage: 35.0 MG, WEEKLY
  120. ALBUTEROL [Concomitant]
     Active Substance: ALBUTEROL
     Dosage: METERED-DOSE (AEROSOL)
  121. SIMVASTATIN [Concomitant]
     Active Substance: SIMVASTATIN
     Indication: Cerebrovascular accident
     Dosage: 10.0 MG, 1X/DAY
  122. SITAGLIPTIN [Concomitant]
     Active Substance: SITAGLIPTIN
     Indication: Diabetes mellitus
     Dosage: 100.0 MG, 1X/DAY
  123. TRAMADOL [Concomitant]
     Active Substance: TRAMADOL
     Indication: Pain
     Dosage: UNK
  124. CYANOCOBALAMIN [Concomitant]
     Active Substance: CYANOCOBALAMIN
     Dosage: UNK
  125. ALISKIREN HEMIFUMARATE [Concomitant]
     Active Substance: ALISKIREN HEMIFUMARATE
     Indication: Hypertension
     Dosage: 300.0 MG, 1X/DAY
  126. ALISKIREN HEMIFUMARATE [Concomitant]
     Active Substance: ALISKIREN HEMIFUMARATE
     Dosage: 300.0 MG, 1X/DAY
  127. BETAMETHASONE DIPROPIONATE\CALCIPOTRIENE [Concomitant]
     Active Substance: BETAMETHASONE DIPROPIONATE\CALCIPOTRIENE
     Indication: Psoriasis
     Dosage: UNK
  128. BETAMETHASONE/SALICYLIC ACID/ZINC [Concomitant]
     Indication: Psoriasis
     Dosage: UNK
  129. RISEDRONATE SODIUM [Concomitant]
     Active Substance: RISEDRONATE SODIUM
     Indication: Osteoporosis
     Dosage: 35.0 MG, WEEKLY
  130. RISEDRONATE SODIUM [Concomitant]
     Active Substance: RISEDRONATE SODIUM
     Dosage: 1.0 DF, 1X/DAY
  131. RANITIDINE HYDROCHLORIDE [Concomitant]
     Active Substance: RANITIDINE HYDROCHLORIDE
     Indication: Dyspepsia
     Dosage: 150.0 MG
  132. PRAMIPEXOLE [Concomitant]
     Active Substance: PRAMIPEXOLE
     Indication: Restless legs syndrome
     Dosage: 0.25 MG, 1X/DAY
  133. HERBALS [Concomitant]
     Active Substance: HERBALS
     Indication: Constipation
     Dosage: EVERY 12 HOURS
  134. PANTOPRAZOLE SODIUM [Concomitant]
     Active Substance: PANTOPRAZOLE SODIUM
     Dosage: 40.0 MG, 1X/DAY
  135. FLUTICASONE [Concomitant]
     Active Substance: FLUTICASONE
     Indication: Wheezing
     Dosage: 2 DF, 2X/DAY
  136. FLUTICASONE [Concomitant]
     Active Substance: FLUTICASONE
     Dosage: 2 DF, 2X/DAY
  137. CALCIUM [Concomitant]
     Active Substance: CALCIUM
     Dosage: UNK

REACTIONS (18)
  - Drug ineffective [Unknown]
  - Treatment noncompliance [Unknown]
  - Amnesia [Unknown]
  - Blood pressure inadequately controlled [Unknown]
  - Cognitive disorder [Unknown]
  - Contusion [Unknown]
  - Depressed mood [Unknown]
  - Diabetes mellitus inadequate control [Unknown]
  - Exercise tolerance decreased [Unknown]
  - Hypertension [Unknown]
  - Medication error [Unknown]
  - Mobility decreased [Unknown]
  - Multiple drug therapy [Unknown]
  - Oedema peripheral [Unknown]
  - Abdominal discomfort [Unknown]
  - Product use issue [Unknown]
  - Peripheral swelling [Unknown]
  - Off label use [Unknown]
